APPROVED DRUG PRODUCT: RINGER'S IN PLASTIC CONTAINER
Active Ingredient: CALCIUM CHLORIDE; POTASSIUM CHLORIDE; SODIUM CHLORIDE
Strength: 33MG/100ML;30MG/100ML;860MG/100ML
Dosage Form/Route: SOLUTION;IRRIGATION
Application: N017635 | Product #001 | TE Code: AT
Applicant: OTSUKA ICU MEDICAL LLC
Approved: Approved Prior to Jan 1, 1982 | RLD: No | RS: No | Type: RX